FAERS Safety Report 9669244 (Version 2)
Quarter: 2013Q4

REPORT INFORMATION
  Report Type: Report from Study
  Country: US (occurrence: US)
  Receive Date: 20131105
  Receipt Date: 20131125
  Transmission Date: 20140711
  Serious: Yes (Life-Threatening, Hospitalization)
  Sender: FDA-Public Use
  Company Number: US-CELGENEUS-163-21660-13105102

PATIENT
  Age: 65 Year
  Sex: Male
  Weight: 88.5 kg

DRUGS (13)
  1. ABRAXANE [Suspect]
     Indication: PANCREATIC CARCINOMA METASTATIC
     Dosage: 125 MILLIGRAM/SQ. METER
     Route: 065
     Dates: start: 20130920
  2. ABRAXANE [Suspect]
     Dosage: 125 MILLIGRAM/SQ. METER
     Route: 065
     Dates: start: 20131018, end: 20131025
  3. ABRAXANE [Suspect]
     Dosage: 100 MILLIGRAM/SQ. METER
     Route: 065
     Dates: start: 20131108
  4. GEMCITABINE [Suspect]
     Indication: PANCREATIC CARCINOMA METASTATIC
     Dosage: 1000 MILLIGRAM/SQ. METER
     Route: 065
     Dates: start: 20130920
  5. GEMCITABINE [Suspect]
     Dosage: 1000 MILLIGRAM/SQ. METER
     Route: 065
     Dates: start: 20131018, end: 20131025
  6. GEMCITABINE [Suspect]
     Dosage: 800 MILLIGRAM/SQ. METER
     Route: 065
     Dates: start: 20131108
  7. HYDROXYCHLOROQUINE [Suspect]
     Indication: PANCREATIC CARCINOMA METASTATIC
     Dosage: 1200 MILLIGRAM
     Route: 065
     Dates: start: 20130920
  8. HYDROXYCHLOROQUINE [Suspect]
     Dosage: 1200 MILLIGRAM
     Route: 065
     Dates: start: 20131018, end: 20131025
  9. HYDROXYCHLOROQUINE [Suspect]
     Dosage: 1200 MILLIGRAM
     Route: 065
     Dates: start: 20131108
  10. AMLODIPINE [Concomitant]
     Indication: HYPERTENSION
     Dosage: 5 MILLIGRAM
     Route: 048
     Dates: start: 20130805
  11. TAMSULOSIN [Concomitant]
     Indication: BENIGN PROSTATIC HYPERPLASIA
     Dosage: .4 MILLIGRAM
     Route: 048
     Dates: start: 20130805
  12. MIRTAZAPINE [Concomitant]
     Indication: DEPRESSION
     Dosage: 15 MILLIGRAM
     Route: 048
     Dates: start: 20130927
  13. NAFCILLIN [Concomitant]
     Indication: SEPSIS
     Dosage: 12 GRAM
     Route: 041
     Dates: start: 20131027, end: 20131108

REACTIONS (2)
  - Device related sepsis [Recovered/Resolved]
  - Bacteraemia [Recovered/Resolved]
